FAERS Safety Report 8394842-8 (Version None)
Quarter: 2012Q2

REPORT INFORMATION
  Report Type: 
  Country: None (occurrence: None)
  Receive Date: 20120524
  Receipt Date: 20120518
  Transmission Date: 20120825
  Serious: Yes (Hospitalization, Other)
  Sender: FDA-Public Use
  Company Number: IMP_05905_2012

PATIENT
  Age: 58 Year
  Sex: Male

DRUGS (3)
  1. CLOPIDEGREL [Concomitant]
  2. DIPYRIDAMOLE [Suspect]
     Indication: SCAN MYOCARDIAL PERFUSION
     Dosage: (DF INTRAVENOUS (NOT OTHERWISE SPECIFIED))
     Route: 042
  3. COUMADIN /00014802/ (UNKNOWN) [Concomitant]

REACTIONS (2)
  - CEREBROVASCULAR ACCIDENT [None]
  - CAROTID ARTERY OCCLUSION [None]
